FAERS Safety Report 6567472-8 (Version None)
Quarter: 2010Q1

REPORT INFORMATION
  Report Type: 
  Country: None (occurrence: None)
  Receive Date: 20100202
  Receipt Date: 20100125
  Transmission Date: 20100710
  Serious: Yes (Disabling)
  Sender: FDA-Public Use
  Company Number: US-ELI_LILLY_AND_COMPANY-US201001005198

PATIENT
  Sex: Male

DRUGS (2)
  1. HUMALOG [Suspect]
     Indication: DIABETES MELLITUS
     Dosage: 30 U, AS NEEDED
     Dates: start: 20060101
  2. LANTUS [Concomitant]
     Dosage: 60 U, EACH EVENING
     Dates: start: 20060101

REACTIONS (8)
  - BLOOD GLUCOSE INCREASED [None]
  - CARDIAC DISORDER [None]
  - DIABETIC NEUROPATHY [None]
  - DRUG INEFFECTIVE [None]
  - EYE DISORDER [None]
  - MALAISE [None]
  - POOR QUALITY DRUG ADMINISTERED [None]
  - VISUAL IMPAIRMENT [None]
